FAERS Safety Report 8399763-2 (Version None)
Quarter: 2012Q2

REPORT INFORMATION
  Report Type: 
  Country: None (occurrence: None)
  Receive Date: 20120531
  Receipt Date: 20120518
  Transmission Date: 20120825
  Serious: No
  Sender: FDA-Public Use
  Company Number: US-ASTRAZENECA-2012SE23597

PATIENT
  Age: 54 Year
  Sex: Female
  Weight: 72.6 kg

DRUGS (1)
  1. NEXIUM [Suspect]
     Indication: GASTROOESOPHAGEAL REFLUX DISEASE
     Route: 048
     Dates: start: 20120223, end: 20120410

REACTIONS (6)
  - PALPITATIONS [None]
  - PRURITUS [None]
  - URTICARIA [None]
  - DRUG HYPERSENSITIVITY [None]
  - ASTHMA [None]
  - OCULAR HYPERAEMIA [None]
